FAERS Safety Report 4896667-4 (Version None)
Quarter: 2006Q1

REPORT INFORMATION
  Report Type: 
  Country: None (occurrence: None)
  Receive Date: 20060131
  Receipt Date: 20060124
  Transmission Date: 20060701
  Serious: Yes (Hospitalization)
  Sender: FDA-Public Use
  Company Number: US-BRISTOL-MYERS SQUIBB COMPANY-13258066

PATIENT
  Age: 62 Year
  Sex: Male
  Weight: 88 kg

DRUGS (7)
  1. CETUXIMAB [Suspect]
     Indication: PANCREATIC CARCINOMA
     Dosage: THERAPY INITIATED 10-JAN-2006,TOTAL COURSE DOSE 1430 MG.
     Dates: start: 20060118, end: 20060118
  2. DOCETAXEL [Suspect]
     Indication: PANCREATIC CARCINOMA
     Dosage: THERAPY INITIATED 10-JAN-2006. TOTAL DOSE THIS COURSE 154 MG.
     Dates: start: 20060118, end: 20060118
  3. IRINOTECAN HCL [Suspect]
     Indication: PANCREATIC CARCINOMA
     Dosage: THERAPY INITIATED 10-JAN-2006. TOTAL DOSE ADMINISTERED THIS COURSE 220 MG.
     Dates: start: 20060118, end: 20060118
  4. COLACE [Suspect]
  5. ZOFRAN [Suspect]
  6. ENOXAPARIN SODIUM [Suspect]
     Dosage: TOTAL COURSE DOSE 520 MG. ADMINISTERED ON 23-JAN-2006.
  7. DIOVAN [Concomitant]

REACTIONS (4)
  - ABDOMINAL PAIN [None]
  - DIARRHOEA [None]
  - FEBRILE NEUTROPENIA [None]
  - RECTAL HAEMORRHAGE [None]
